FAERS Safety Report 7079221-8 (Version None)
Quarter: 2010Q4

REPORT INFORMATION
  Report Type: 
  Country: None (occurrence: None)
  Receive Date: 20101102
  Receipt Date: 20101022
  Transmission Date: 20110411
  Serious: No
  Sender: FDA-Public Use
  Company Number: KR-JNJFOC-20101006838

PATIENT
  Sex: Female

DRUGS (3)
  1. DURAGESIC-100 [Suspect]
     Indication: PAIN MANAGEMENT
     Route: 062
  2. DURAGESIC-100 [Suspect]
     Route: 062
  3. RINGERS SOLUTION [Concomitant]
     Route: 065

REACTIONS (3)
  - DISCOMFORT [None]
  - PRURITUS GENERALISED [None]
  - TREATMENT NONCOMPLIANCE [None]
